FAERS Safety Report 23912250 (Version 1)
Quarter: 2024Q2

REPORT INFORMATION
  Report Type: Spontaneous
  Country: BR (occurrence: None)
  Receive Date: 20240528
  Receipt Date: 20240528
  Transmission Date: 20240716
  Serious: Yes (Other)
  Sender: FDA-Public Use
  Company Number: 2024A122322

PATIENT
  Age: 35 Year
  Sex: Male

DRUGS (1)
  1. IMFINZI [Suspect]
     Active Substance: DURVALUMAB
     Indication: Biliary neoplasm
     Dosage: 1500.0MG UNKNOWN
     Route: 042

REACTIONS (6)
  - Blood glucose increased [Recovered/Resolved]
  - Type 1 diabetes mellitus [Recovered/Resolved]
  - Glycosylated haemoglobin increased [Recovered/Resolved]
  - Pyrexia [Recovered/Resolved]
  - Biliary abscess [Unknown]
  - Infection [Recovered/Resolved]

NARRATIVE: CASE EVENT DATE: 20230801
